FAERS Safety Report 24917088 (Version 1)
Quarter: 2025Q1

REPORT INFORMATION
  Report Type: Report from Study
  Country: TR (occurrence: TR)
  Receive Date: 20250203
  Receipt Date: 20250203
  Transmission Date: 20250409
  Serious: Yes (Other)
  Sender: TEVA
  Company Number: TR-TEVA-VS-3292283

PATIENT
  Age: 27 Year
  Sex: Female

DRUGS (1)
  1. COPAXONE [Suspect]
     Active Substance: GLATIRAMER ACETATE
     Indication: Product used for unknown indication
     Route: 065
     Dates: start: 20230306

REACTIONS (5)
  - Loss of consciousness [Recovered/Resolved]
  - Paraesthesia [Recovered/Resolved]
  - Product storage error [Unknown]
  - Blood pressure decreased [Recovered/Resolved]
  - Influenza [Unknown]
